FAERS Safety Report 8357476-7 (Version None)
Quarter: 2012Q2

REPORT INFORMATION
  Report Type: 
  Country: None (occurrence: None)
  Receive Date: 20120514
  Receipt Date: 20120507
  Transmission Date: 20120825
  Serious: Yes (Hospitalization)
  Sender: FDA-Public Use
  Company Number: US-BAYER-2011-095413

PATIENT
  Age: 21 Year
  Sex: Female
  Weight: 56.689 kg

DRUGS (23)
  1. PARAFON FORTE [Concomitant]
     Dosage: UNK
     Dates: start: 20090831
  2. BENTYL [Concomitant]
     Dosage: 20 MG, UNK
     Route: 048
  3. LORTAB [Concomitant]
     Dosage: 5-500MG, UNK
     Route: 048
  4. BITARTRATE/ACETAMINOPHEN [Concomitant]
     Dosage: UNK
     Dates: start: 20100120
  5. TRAMADOL HYDROCHLORIDE [Concomitant]
     Dosage: UNK
     Dates: start: 20091201
  6. DOCUSATE SODIUM [Concomitant]
     Dosage: 100 MG, UNK
     Route: 048
     Dates: start: 20090903
  7. BITARTRATE/ACETAMINOPHEN [Concomitant]
     Dosage: UNK
     Dates: start: 20091121
  8. HYDROCODONE BITARTRATE AND ACETAMINOPHEN [Concomitant]
     Indication: SURGERY
     Dosage: UNK
     Dates: start: 20091101
  9. ACETAMINOPHEN [Concomitant]
     Dosage: 325 MG, UNK
     Route: 048
     Dates: start: 20090829
  10. ZOFRAN [Concomitant]
     Dosage: 8 MG, UNK
  11. PERCOCET [Concomitant]
     Route: 048
  12. ZANTAC [Concomitant]
     Dosage: 150 MG, UNK
     Route: 048
     Dates: start: 20090223
  13. HYDROCODONE BITARTRATE AND ACETAMINOPHEN [Concomitant]
     Indication: BACK PAIN
  14. IBUPROFEN [Concomitant]
     Dosage: 800 MG, UNK
     Route: 048
     Dates: start: 20090829
  15. DUPHALAC [Concomitant]
     Dosage: 10 MG PER 15 ML SYRUP, UNK
     Route: 048
     Dates: start: 20090919
  16. ABILIFY [Concomitant]
     Dosage: 2 MG, UNK
     Dates: start: 20090315
  17. CEPHALEXIN [Concomitant]
     Dosage: 500 MG, UNK
     Route: 048
     Dates: start: 20081108
  18. YAZ [Suspect]
     Indication: CONTRACEPTION
     Dosage: 3/0.02 MG UNK
     Dates: start: 20090501, end: 20090801
  19. NEXIUM [Concomitant]
  20. METHYLPREDNISOLONE [Concomitant]
     Dosage: 4 MG, UNK
     Dates: start: 20091121
  21. ULTRAM [Concomitant]
     Dosage: 50 MG, UNK
     Route: 048
  22. NSAID'S [Concomitant]
     Dosage: UNK
     Dates: start: 20090801
  23. CELEBREX [Concomitant]
     Indication: MUSCULOSKELETAL DISCOMFORT
     Dosage: 200 MG, UNK
     Dates: start: 20081101, end: 20100801

REACTIONS (9)
  - DEPRESSION [None]
  - CHOLECYSTITIS ACUTE [None]
  - BILIARY DYSKINESIA [None]
  - ANXIETY [None]
  - NAUSEA [None]
  - GALLBLADDER DISORDER [None]
  - EATING DISORDER [None]
  - VOMITING [None]
  - PAIN [None]
